FAERS Safety Report 7925570-8 (Version None)
Quarter: 2011Q4

REPORT INFORMATION
  Report Type: 
  Country: None (occurrence: None)
  Receive Date: 20111118
  Receipt Date: 20110408
  Transmission Date: 20120403
  Serious: No
  Sender: FDA-Public Use
  Company Number: US-AMGEN-USASP2011018987

PATIENT
  Sex: Female

DRUGS (5)
  1. ENBREL [Suspect]
     Indication: PRODUCT USED FOR UNKNOWN INDICATION
     Dosage: 50 MG, QWK
     Route: 058
  2. CALCIUM D                          /00944201/ [Concomitant]
  3. METHOTREXATE [Concomitant]
     Dosage: 2.5 MG, UNK
  4. MOBIC [Concomitant]
     Dosage: 7.5 MG, UNK
  5. MULTIVITAMIN                       /00097801/ [Concomitant]

REACTIONS (2)
  - PHARYNGITIS STREPTOCOCCAL [None]
  - INJECTION SITE REACTION [None]
